FAERS Safety Report 6076332-0 (Version None)
Quarter: 2009Q1

REPORT INFORMATION
  Report Type: 
  Country: None (occurrence: None)
  Receive Date: 20090209
  Receipt Date: 20090128
  Transmission Date: 20090719
  Serious: Yes (Other)
  Sender: FDA-Public Use
  Company Number: 20096168

PATIENT
  Age: 47 Year
  Sex: Male

DRUGS (1)
  1. LIORESAL [Suspect]
     Indication: MUSCLE SPASTICITY
     Dosage: MCG, DAILY, INTRATHECAL
     Route: 039

REACTIONS (12)
  - AMNESIA [None]
  - BLOOD PRESSURE INCREASED [None]
  - CONDITION AGGRAVATED [None]
  - CONVULSION [None]
  - DIZZINESS [None]
  - DRUG DELIVERY SYSTEM MALFUNCTION [None]
  - LETHARGY [None]
  - NO THERAPEUTIC RESPONSE [None]
  - PAIN [None]
  - PARAESTHESIA [None]
  - UNDERDOSE [None]
  - WITHDRAWAL SYNDROME [None]
